FAERS Safety Report 6457464-1 (Version None)
Quarter: 2009Q4

REPORT INFORMATION
  Report Type: 
  Country: None (occurrence: None)
  Receive Date: 20091024
  Receipt Date: 20091109
  Transmission Date: 20100525
  Serious: Yes (Hospitalization)
  Sender: FDA-Public Use
  Company Number: 2009AC000100

PATIENT
  Age: 68 Year
  Sex: Female

DRUGS (21)
  1. DIGOXIN [Suspect]
  2. ASPIRIN [Concomitant]
  3. ARIMIDEX [Concomitant]
  4. CALCIUM [Concomitant]
  5. ZETIA [Concomitant]
  6. GEMFIBROZIL [Concomitant]
  7. LISINOPRIL [Concomitant]
  8. ALLOPURINOL [Concomitant]
  9. SIMVASTATIN [Concomitant]
  10. INDERAL [Concomitant]
  11. SELENIUM [Concomitant]
  12. *ALLOPURINOL [Concomitant]
  13. ASPIRIN [Concomitant]
  14. CALCIUM [Concomitant]
  15. FEMARA [Concomitant]
  16. GLUCOSAMINE [Concomitant]
  17. LISINOPRIL [Concomitant]
  18. MULTI-VITAMINS [Concomitant]
  19. SELENIUM [Concomitant]
  20. FISH OIL [Concomitant]
  21. PROPRANOLOL [Concomitant]

REACTIONS (9)
  - ATRIOVENTRICULAR BLOCK FIRST DEGREE [None]
  - CHEST DISCOMFORT [None]
  - DYSLIPIDAEMIA [None]
  - DYSPNOEA [None]
  - HYPERLIPIDAEMIA [None]
  - HYPERTENSION [None]
  - SENSATION OF HEAVINESS [None]
  - SUPRAVENTRICULAR TACHYCARDIA [None]
  - THERAPEUTIC AGENT TOXICITY [None]
